FAERS Safety Report 9647418 (Version 1)
Quarter: 2013Q4

REPORT INFORMATION
  Report Type: Spontaneous
  Country: TR (occurrence: TR)
  Receive Date: 20131028
  Receipt Date: 20131028
  Transmission Date: 20140711
  Serious: Yes (Disabling, Other)
  Sender: FDA-Public Use
  Company Number: PHHY2013TR118751

PATIENT
  Age: 73 Year
  Sex: Female

DRUGS (5)
  1. OLANZAPINE [Suspect]
     Indication: BIPOLAR DISORDER
  2. FLUVOXAMINE [Suspect]
     Indication: BIPOLAR DISORDER
  3. DONEPEZIL [Suspect]
     Indication: BIPOLAR DISORDER
  4. LITHIUM [Suspect]
     Indication: BIPOLAR DISORDER
  5. QUETIAPINE [Concomitant]

REACTIONS (14)
  - Quadriparesis [Unknown]
  - Ataxia [Unknown]
  - Mental status changes [Unknown]
  - Unresponsive to stimuli [Unknown]
  - Muscle rigidity [Unknown]
  - Myoclonus [Unknown]
  - Disorientation [Unknown]
  - Psychomotor retardation [Unknown]
  - Abnormal behaviour [Unknown]
  - Hyporeflexia [Unknown]
  - Tremor [Unknown]
  - Somnolence [Unknown]
  - Dysarthria [Unknown]
  - Toxicity to various agents [Unknown]
